FAERS Safety Report 11325100 (Version 2)
Quarter: 2015Q4

REPORT INFORMATION
  Report Type: Report from Study
  Country: ES (occurrence: ES)
  Receive Date: 20150730
  Receipt Date: 20151016
  Transmission Date: 20160304
  Serious: Yes (Hospitalization)
  Sender: FDA-Public Use
  Company Number: ES-SEATTLE GENETICS-2015SGN01237

PATIENT

DRUGS (26)
  1. SODIUM CHLORIDE. [Concomitant]
     Active Substance: SODIUM CHLORIDE
     Dosage: 1000 ML, UNK
  2. SODIUM CHLORIDE. [Concomitant]
     Active Substance: SODIUM CHLORIDE
     Dosage: 100 ML, UNK
  3. EMCONCOR [Concomitant]
     Active Substance: BISOPROLOL FUMARATE
     Dosage: 5 MG, UNK
  4. ARTEDIL [Concomitant]
     Dosage: 10 MG, UNK
  5. EFENSOL [Concomitant]
     Dosage: 3 G, UNK
  6. ENEMA CASEN                        /01858901/ [Concomitant]
  7. URSOBILANE [Concomitant]
     Dosage: 300 MG, UNK
  8. REXER [Concomitant]
     Active Substance: MIRTAZAPINE
     Dosage: 15 MG, UNK
  9. AERO RED [Concomitant]
     Dosage: 80 MG, UNK
  10. PUNTUAL [Concomitant]
  11. LYRICA [Concomitant]
     Active Substance: PREGABALIN
     Dosage: 150 MG, UNK
  12. ADIRO [Concomitant]
     Active Substance: ASPIRIN
     Dosage: 100 MG, UNK
  13. BRENTUXIMAB VEDOTIN [Suspect]
     Active Substance: BRENTUXIMAB VEDOTIN
     Indication: HODGKIN^S DISEASE
     Dosage: 92.5 UNK, UNK
     Route: 042
     Dates: start: 20140908, end: 20150601
  14. DIAFUSOR [Concomitant]
     Active Substance: NITROGLYCERIN
     Dosage: UNK
  15. SEGURIL [Concomitant]
     Active Substance: FUROSEMIDE
     Dosage: 20 MG, UNK
  16. XALATAN [Concomitant]
     Active Substance: LATANOPROST
  17. PRIMPERAN [Concomitant]
     Active Substance: METOCLOPRAMIDE HYDROCHLORIDE
     Dosage: 10 MG, UNK
     Route: 042
  18. HIBOR [Concomitant]
     Active Substance: BEMIPARIN SODIUM
     Dosage: 3500 IU, UNK
     Route: 058
  19. PANTOPRAZOLE [Concomitant]
     Active Substance: PANTOPRAZOLE SODIUM
     Dosage: 40 MG, UNK
     Route: 042
  20. GENOXAL [Concomitant]
     Active Substance: CYCLOPHOSPHAMIDE
     Dosage: 100 MG, UNK
  21. ZARATOR                            /01326101/ [Concomitant]
     Active Substance: ATORVASTATIN CALCIUM
     Dosage: 10 MG, UNK
  22. PARACETAMOL [Concomitant]
     Active Substance: ACETAMINOPHEN
     Dosage: 1 G, UNK
     Route: 042
  23. NOCTAMID [Concomitant]
     Active Substance: LORMETAZEPAM
     Dosage: 1 MG, UNK
  24. SODIUM CHLORIDE. [Concomitant]
     Active Substance: SODIUM CHLORIDE
     Dosage: 100 ML, UNK
  25. SODIUM CHLORIDE. [Concomitant]
     Active Substance: SODIUM CHLORIDE
     Dosage: 1000 ML, UNK
  26. ZOVIRAX [Concomitant]
     Active Substance: ACYCLOVIR
     Dosage: 800 MG, UNK

REACTIONS (1)
  - Cholangitis [Recovered/Resolved]

NARRATIVE: CASE EVENT DATE: 20150630
